FAERS Safety Report 17687252 (Version 3)
Quarter: 2020Q2

REPORT INFORMATION
  Report Type: Spontaneous
  Country: GB (occurrence: GB)
  Receive Date: 20200421
  Receipt Date: 20200522
  Transmission Date: 20200714
  Serious: Yes (Death, Hospitalization)
  Sender: FDA-Public Use
  Company Number: GB-ROCHE-2585264

PATIENT
  Sex: Female

DRUGS (12)
  1. ORAMORPH SR SUSTAINED RELEASE [Concomitant]
     Active Substance: MORPHINE SULFATE
  2. MIDAZOLAM. [Concomitant]
     Active Substance: MIDAZOLAM
  3. OXYGEN. [Concomitant]
     Active Substance: OXYGEN
     Dosage: 6 L/MIN
     Route: 065
  4. CELLCEPT [Suspect]
     Active Substance: MYCOPHENOLATE MOFETIL\MYCOPHENOLATE MOFETIL HYDROCHLORIDE
     Indication: MULTIPLE SCLEROSIS
  5. GLYCOPYRRONIUM [Concomitant]
     Active Substance: GLYCOPYRRONIUM
  6. AZTREONAM. [Concomitant]
     Active Substance: AZTREONAM
     Route: 065
  7. ACICLOVIR [Concomitant]
     Active Substance: ACYCLOVIR
     Route: 065
  8. MEROPENEM. [Concomitant]
     Active Substance: MEROPENEM
     Route: 065
  9. CELLCEPT [Suspect]
     Active Substance: MYCOPHENOLATE MOFETIL\MYCOPHENOLATE MOFETIL HYDROCHLORIDE
     Indication: LUNG TRANSPLANT
     Route: 065
     Dates: start: 20041004, end: 20191224
  10. LORAZEPAM. [Concomitant]
     Active Substance: LORAZEPAM
  11. SEVREDOL [Concomitant]
     Active Substance: MORPHINE
  12. TRAMADOL. [Concomitant]
     Active Substance: TRAMADOL

REACTIONS (6)
  - Ill-defined disorder [Unknown]
  - Dysphagia [Unknown]
  - Eye disorder [Unknown]
  - Dry mouth [Unknown]
  - Death [Fatal]
  - Herpes zoster [Unknown]
